FAERS Safety Report 16301238 (Version 1)
Quarter: 2019Q2

REPORT INFORMATION
  Report Type: Spontaneous
  Country: US (occurrence: US)
  Receive Date: 20190510
  Receipt Date: 20190510
  Transmission Date: 20190711
  Serious: No
  Sender: FDA-Public Use
  Company Number: US-BAYER-2019-093090

PATIENT
  Age: 71 Year
  Sex: Female
  Weight: 69 kg

DRUGS (3)
  1. MIRALAX [Suspect]
     Active Substance: POLYETHYLENE GLYCOL 3350
     Indication: GASTROINTESTINAL DISORDER
     Dosage: 1 DF
     Route: 048
  2. GLIMEPIRID [Concomitant]
     Active Substance: GLIMEPIRIDE
     Dosage: UNK
  3. INVOKAMET [Concomitant]
     Active Substance: CANAGLIFLOZIN\METFORMIN HYDROCHLORIDE
     Dosage: UNK

REACTIONS (2)
  - Nausea [Unknown]
  - Product use issue [Unknown]
